FAERS Safety Report 8674501 (Version 2)
Quarter: 2013Q4

REPORT INFORMATION
  Report Type: Spontaneous
  Country: US (occurrence: US)
  Receive Date: 20120720
  Receipt Date: 20131108
  Transmission Date: 20140711
  Serious: Yes (Hospitalization)
  Sender: FDA-Public Use
  Company Number: US-PFIZER INC-2012173686

PATIENT
  Age: 68 Year
  Sex: Female
  Weight: 121 kg

DRUGS (18)
  1. AMIODARONE HCL [Suspect]
     Indication: ATRIAL FIBRILLATION
     Dosage: UNK, DAILY
     Dates: start: 201203, end: 201205
  2. AMIODARONE HCL [Suspect]
     Indication: ATRIAL FLUTTER
  3. COUMADIN [Concomitant]
     Indication: ANTICOAGULANT THERAPY
     Dosage: UNK, DAILY
  4. CARVEDILOL [Concomitant]
     Dosage: 12.5MG TWO TIMES A DAY
  5. SYNTHROID [Concomitant]
     Indication: THYROID DISORDER
     Dosage: 100MCG DAILY
  6. GABAPENTIN [Concomitant]
     Dosage: UNK
  7. DIGOXIN [Concomitant]
     Dosage: 0.125 MG, DAILY
  8. LASIX [Concomitant]
     Indication: DIURETIC THERAPY
     Dosage: 40MG TWO TIMES A DAY
  9. MAGNESIUM OXIDE [Concomitant]
     Dosage: UNK
  10. TYLENOL DOUBLE STRENGTH [Concomitant]
     Dosage: UNK
  11. CALCIUM [Concomitant]
     Dosage: 500 MG, UNK
  12. VITAMIN E [Concomitant]
     Dosage: 400 IU, UNK
  13. NORVASC [Concomitant]
     Dosage: 5 MG, DAILY
  14. MULTIVITAMINS [Concomitant]
     Dosage: UNK
  15. VITAMIN C [Concomitant]
     Dosage: UNK
  16. POTASSIUM [Concomitant]
     Dosage: 180 MG, UNK
  17. FIBER POWDER [Concomitant]
     Dosage: UNK
  18. PREDNISONE [Concomitant]
     Dosage: 5 MG, DAILY

REACTIONS (3)
  - Pulmonary haemorrhage [Unknown]
  - Toxicity to various agents [Unknown]
  - Drug hypersensitivity [Unknown]
